FAERS Safety Report 5080401-1 (Version None)
Quarter: 2006Q3

REPORT INFORMATION
  Report Type: 
  Country: None (occurrence: None)
  Receive Date: 20060815
  Receipt Date: 20060809
  Transmission Date: 20061208
  Serious: Yes (Death)
  Sender: FDA-Public Use
  Company Number: FR-ROCHE-459040

PATIENT
  Age: 61 Year
  Sex: Male

DRUGS (9)
  1. RIVOTRIL [Suspect]
     Indication: DRUG USE FOR UNKNOWN INDICATION
     Route: 048
     Dates: start: 20060419
  2. RISPERDAL [Suspect]
     Route: 048
     Dates: start: 20060419, end: 20060602
  3. RISPERDAL [Suspect]
     Route: 048
     Dates: start: 20060603, end: 20060618
  4. RISPERDAL [Suspect]
     Route: 048
     Dates: start: 20060619
  5. TANAKAN [Suspect]
     Indication: DRUG USE FOR UNKNOWN INDICATION
     Route: 048
     Dates: start: 20060426
  6. RISPERDAL [Suspect]
     Dosage: REPORTED AS RISPERDALCONSTA LP
     Route: 030
     Dates: start: 20060510
  7. STILNOX [Suspect]
     Indication: DRUG USE FOR UNKNOWN INDICATION
     Route: 048
     Dates: start: 20060603
  8. NOCTAMIDE [Suspect]
     Indication: DRUG USE FOR UNKNOWN INDICATION
     Route: 048
     Dates: start: 20060603
  9. PIASCLEDINE [Concomitant]
     Indication: DRUG USE FOR UNKNOWN INDICATION
     Dates: start: 20060426

REACTIONS (3)
  - CARDIAC ARREST [None]
  - CARDIOVASCULAR DISORDER [None]
  - SUDDEN DEATH [None]
